FAERS Safety Report 8503487-8 (Version None)
Quarter: 2012Q3

REPORT INFORMATION
  Report Type: 
  Country: None (occurrence: None)
  Receive Date: 20120711
  Receipt Date: 20120509
  Transmission Date: 20120928
  Serious: Yes (Other)
  Sender: FDA-Public Use
  Company Number: JP-GLAXOSMITHKLINE-B0801467A

PATIENT
  Sex: Male

DRUGS (12)
  1. NITRAZEPAM [Concomitant]
     Indication: INSOMNIA
     Dosage: 5MG PER DAY
     Route: 048
     Dates: start: 20110401
  2. SEROQUEL [Concomitant]
     Indication: BIPOLAR DISORDER
     Route: 048
     Dates: start: 20110415, end: 20110721
  3. NITRAZEPAM [Concomitant]
     Indication: BIPOLAR DISORDER
     Route: 048
  4. ANTI-ANXIETY MED- NAME UNKNOWN [Concomitant]
  5. DEPAKENE [Concomitant]
     Dosage: 1200MG PER DAY
     Route: 048
     Dates: start: 20110721, end: 20120116
  6. PAXIL [Suspect]
     Indication: PROPHYLAXIS
     Route: 048
     Dates: start: 20090101, end: 20110105
  7. LAMICTAL [Suspect]
     Indication: DEPRESSION
     Dosage: 150MG PER DAY
     Route: 048
     Dates: start: 20110809, end: 20120417
  8. HYPNOTICS [Concomitant]
     Indication: INSOMNIA
     Route: 065
     Dates: start: 20090101
  9. DEPAKENE [Concomitant]
     Route: 048
  10. MEILAX [Concomitant]
     Indication: BIPOLAR DISORDER
     Route: 048
  11. DEPAKENE [Concomitant]
     Indication: MOOD SWINGS
     Dosage: 1600MG PER DAY
     Route: 048
     Dates: start: 20110510, end: 20110720
  12. SEDATIVES [Concomitant]

REACTIONS (18)
  - ABDOMINAL DISCOMFORT [None]
  - IRRITABILITY [None]
  - PAIN [None]
  - RASH [None]
  - SEDATION [None]
  - INCOHERENT [None]
  - STOMATITIS [None]
  - MANIA [None]
  - ANXIETY [None]
  - DEPRESSED MOOD [None]
  - MENTAL IMPAIRMENT [None]
  - DIZZINESS [None]
  - FEELING ABNORMAL [None]
  - TREMOR [None]
  - IMPULSIVE BEHAVIOUR [None]
  - DEPRESSIVE SYMPTOM [None]
  - DELUSION [None]
  - ANOSOGNOSIA [None]
